FAERS Safety Report 17593788 (Version 1)
Quarter: 2020Q1

REPORT INFORMATION
  Report Type: Spontaneous
  Country: US (occurrence: US)
  Receive Date: 20200327
  Receipt Date: 20200327
  Transmission Date: 20200409
  Serious: Yes (Death)
  Sender: FDA-Public Use
  Company Number: NVSC2020US033465

PATIENT
  Age: 18 Year
  Sex: Male

DRUGS (4)
  1. LEUCOVORIN. [Suspect]
     Active Substance: LEUCOVORIN
     Indication: TOXOPLASMOSIS
     Dosage: UNK
     Route: 065
  2. RITUXIMAB. [Suspect]
     Active Substance: RITUXIMAB
     Indication: INFUSION
     Dosage: 375 MG/M2 ? 1 DOSE, GIVEN ON DAY +1
     Route: 065
  3. SULFADIAZINE. [Suspect]
     Active Substance: SULFADIAZINE
     Indication: TOXOPLASMOSIS
     Dosage: UNK
     Route: 065
  4. PYRIMETHAMINE HYDROCHLORIDE [Suspect]
     Active Substance: PYRIMETHAMINE
     Indication: TOXOPLASMOSIS
     Dosage: UNK
     Route: 065

REACTIONS (4)
  - Pyrexia [Unknown]
  - Respiratory failure [Fatal]
  - Toxoplasmosis [Fatal]
  - Product use in unapproved indication [Unknown]
